FAERS Safety Report 16857949 (Version 2)
Quarter: 2020Q3

REPORT INFORMATION
  Report Type: Report from Study
  Country: JP (occurrence: JP)
  Receive Date: 20190926
  Receipt Date: 20191004
  Transmission Date: 20201105
  Serious: Yes (Hospitalization)
  Sender: FDA-Public Use
  Company Number: JP-ASTRAZENECA-2019SF26372

PATIENT
  Age: 19379 Day
  Sex: Female

DRUGS (16)
  1. TREMELIMUMAB. [Suspect]
     Active Substance: TREMELIMUMAB
     Indication: SMALL CELL LUNG CANCER
     Route: 042
     Dates: start: 20190815, end: 20190815
  2. MEDI4736 [Suspect]
     Active Substance: DURVALUMAB
     Indication: SMALL CELL LUNG CANCER
     Route: 042
     Dates: start: 20190815, end: 20190815
  3. TREMELIMUMAB. [Suspect]
     Active Substance: TREMELIMUMAB
     Indication: SMALL CELL LUNG CANCER
     Route: 042
     Dates: start: 20190718, end: 20190718
  4. SULBACTAM SODIUM CEFOPERAZONE SODIUM [Concomitant]
     Indication: PROPHYLAXIS
     Route: 042
     Dates: start: 20190824
  5. PREDNISOLONE SODIUM SUCCINATE [Concomitant]
     Active Substance: PREDNISOLONE SODIUM SUCCINATE
     Indication: INFLAMMATION
     Route: 042
     Dates: start: 20190830
  6. MORPHINE SULFATE HYDRATE [Concomitant]
     Indication: CHEST PAIN
     Route: 048
     Dates: start: 20190822
  7. LOXOPROFEN CITRATE HYDRATE [Concomitant]
     Indication: CHEST PAIN
     Route: 048
     Dates: start: 20190131
  8. LANSOPRAZOLE. [Concomitant]
     Active Substance: LANSOPRAZOLE
     Indication: DECREASED APPETITE
     Dosage: 15.0MG AS REQUIRED
     Route: 048
     Dates: start: 20190610
  9. MEDI4736 [Suspect]
     Active Substance: DURVALUMAB
     Indication: SMALL CELL LUNG CANCER
     Route: 042
     Dates: start: 20190620, end: 20190620
  10. HEPARINOID [Concomitant]
     Active Substance: CHONDROITIN SULFATE (BOVINE)
     Indication: DRY SKIN PROPHYLAXIS
     Route: 061
     Dates: start: 20190510
  11. DEXTROMETHORPHAN HYDROBROMIDE HYDRATE [Concomitant]
     Active Substance: DEXTROMETHORPHAN HYDROBROMIDE
     Indication: RADIATION PNEUMONITIS
     Route: 048
     Dates: start: 20190724
  12. MORPHINE HYDROCHLORIDE HYDRATE [Concomitant]
     Active Substance: MORPHINE HYDROCHLORIDE
     Indication: CHEST PAIN
     Dosage: 5.0MG AS REQUIRED
     Route: 048
     Dates: start: 20190815
  13. MAGNESIUM OXIDE. [Concomitant]
     Active Substance: MAGNESIUM OXIDE
     Indication: CONSTIPATION PROPHYLAXIS
     Dosage: 330.0MG AS REQUIRED
     Route: 048
     Dates: start: 20190121
  14. DIHYDROCODEINE PHOSPHATE [Concomitant]
     Active Substance: DIHYDROCODEINE PHOSPHATE
     Indication: RADIATION PNEUMONITIS
     Dosage: AS REQUIRED
     Route: 002
     Dates: start: 20190724
  15. MEDI4736 [Suspect]
     Active Substance: DURVALUMAB
     Indication: SMALL CELL LUNG CANCER
     Route: 042
     Dates: start: 20190718, end: 20190718
  16. TREMELIMUMAB. [Suspect]
     Active Substance: TREMELIMUMAB
     Indication: SMALL CELL LUNG CANCER
     Route: 042
     Dates: start: 20190620, end: 20190620

REACTIONS (2)
  - Bile duct stone [Not Recovered/Not Resolved]
  - Drug-induced liver injury [Not Recovered/Not Resolved]

NARRATIVE: CASE EVENT DATE: 20190822
